FAERS Safety Report 12130112 (Version 1)
Quarter: 2016Q1

REPORT INFORMATION
  Report Type: Other
  Country: US (occurrence: US)
  Receive Date: 20160229
  Receipt Date: 20160229
  Transmission Date: 20160526
  Serious: No
  Sender: FDA-Public Use
  Company Number: US-ACORDA-ACO_23990_2010

PATIENT
  Age: 57 Year
  Sex: Female
  Weight: 94 kg

DRUGS (2)
  1. AMPYRA [Suspect]
     Active Substance: DALFAMPRIDINE
     Indication: GAIT DISTURBANCE
     Dosage: 10MG EVERY 12 HOURS
     Route: 048
     Dates: start: 20100802, end: 201008
  2. AMPYRA [Suspect]
     Active Substance: DALFAMPRIDINE
     Indication: MULTIPLE SCLEROSIS
     Dosage: 10MG Q12 HOURS
     Route: 065
     Dates: start: 20100805

REACTIONS (4)
  - Paraesthesia [Not Recovered/Not Resolved]
  - Dysuria [Recovered/Resolved]
  - Insomnia [Recovered/Resolved]
  - Adverse drug reaction [Unknown]

NARRATIVE: CASE EVENT DATE: 201008
